FAERS Safety Report 8965606 (Version 1)
Quarter: 2012Q4

REPORT INFORMATION
  Report Type: Spontaneous
  Country: GB (occurrence: None)
  Receive Date: 20121205
  Receipt Date: 20121205
  Transmission Date: 20130627
  Serious: Yes (Disabling)
  Sender: FDA-Public Use
  Company Number: AUR-APL-2012-05064

PATIENT
  Age: 68 Year
  Sex: Female
  Weight: 72 kg

DRUGS (4)
  1. ALENDRONIC ACID (ALENDRONIC ACID) [Suspect]
     Dates: start: 201101
  2. CANDESARTAN CILEXETIL [Suspect]
     Route: 048
     Dates: start: 201101
  3. LANTUS (INSULIN GLARGINE) [Concomitant]
  4. NOVOMIX (INSULIN ASPART) [Concomitant]

REACTIONS (2)
  - Myalgia [None]
  - Muscle spasms [None]
